FAERS Safety Report 13800903 (Version 1)
Quarter: 2017Q3

REPORT INFORMATION
  Report Type: Spontaneous
  Country: GR (occurrence: GR)
  Receive Date: 20170727
  Receipt Date: 20170727
  Transmission Date: 20171127
  Serious: Yes (Hospitalization)
  Sender: FDA-Public Use
  Company Number: GR-PFIZER INC-683701

PATIENT
  Age: 66 Year
  Sex: Female
  Weight: 70 kg

DRUGS (4)
  1. METHOTREXATE SODIUM. [Suspect]
     Active Substance: METHOTREXATE SODIUM
     Indication: BREAST CANCER
     Dosage: 90 MG, FREQ: 2 WEEK; INTERVAL: 1
     Route: 042
     Dates: start: 20070124, end: 20070222
  2. TAXOL [Interacting]
     Active Substance: PACLITAXEL
     Indication: BREAST CANCER
     Dosage: 120 MG, FREQ: 1 WEEK; INTERVAL: 1
     Route: 042
     Dates: start: 20070315, end: 20070503
  3. FLUOROURACIL. [Interacting]
     Active Substance: FLUOROURACIL
     Indication: BREAST CANCER
     Dosage: 1340 MG, FREQ: 2 WEEK; INTERVAL: 1
     Route: 042
     Dates: start: 20070124, end: 20070222
  4. ENDOXAN /00021102/ [Interacting]
     Active Substance: CYCLOPHOSPHAMIDE
     Indication: BREAST CANCER
     Dosage: 1340 MG, FREQ: 2 WEEK; INTERVAL: 1
     Route: 042
     Dates: start: 20070124, end: 20070222

REACTIONS (6)
  - Febrile neutropenia [Recovered/Resolved]
  - Leukopenia [Recovered/Resolved]
  - Drug interaction [Unknown]
  - Neutropenia [Recovered/Resolved]
  - Haemoglobin decreased [Recovered/Resolved]
  - Neutropenia [Recovered/Resolved]

NARRATIVE: CASE EVENT DATE: 20070301
